FAERS Safety Report 10710416 (Version 1)
Quarter: 2015Q1

REPORT INFORMATION
  Report Type: Spontaneous
  Country: US (occurrence: US)
  Receive Date: 20150114
  Receipt Date: 20150114
  Transmission Date: 20150721
  Serious: Yes (Hospitalization)
  Sender: FDA-Public Use
  Company Number: US-ENDO PHARMACEUTICALS INC.-PERC20140066

PATIENT
  Age: 2 Year
  Sex: Male

DRUGS (1)
  1. PERCOCET [Suspect]
     Active Substance: ACETAMINOPHEN\OXYCODONE HYDROCHLORIDE
     Indication: ACCIDENTAL POISONING
     Dosage: ONE TABLET
     Route: 048
     Dates: start: 20140208, end: 20140208

REACTIONS (1)
  - Accidental poisoning [Unknown]

NARRATIVE: CASE EVENT DATE: 20140208
